FAERS Safety Report 10270126 (Version 1)
Quarter: 2014Q2

REPORT INFORMATION
  Report Type: Spontaneous
  Country: GB (occurrence: None)
  Receive Date: 20140625
  Receipt Date: 20140625
  Transmission Date: 20141212
  Serious: Yes (Death)
  Sender: FDA-Public Use
  Company Number: 2014GB00624

PATIENT
  Sex: 0

DRUGS (3)
  1. CARBOPLATIN (CARBOPLATIN) INJECTION [Suspect]
     Indication: NON-SMALL CELL LUNG CANCER
     Dosage: AUC 6 MG MIN/ML Q3W
  2. AXITINIB [Suspect]
     Indication: NON-SMALL CELL LUNG CANCER
     Route: 048
  3. BEVACIZUMAB [Suspect]
     Indication: NON-SMALL CELL LUNG CANCER

REACTIONS (1)
  - Respiratory distress [None]
